FAERS Safety Report 10769295 (Version 1)
Quarter: 2015Q1

REPORT INFORMATION
  Report Type: Report from Study
  Country: CA (occurrence: CA)
  Receive Date: 20150206
  Receipt Date: 20150206
  Transmission Date: 20150721
  Serious: Yes (Other)
  Sender: FDA-Public Use
  Company Number: CA-AMGEN-CANSL2015009545

PATIENT
  Age: 57 Year
  Sex: Female

DRUGS (1)
  1. PROLIA [Suspect]
     Active Substance: DENOSUMAB
     Indication: OSTEOPOROSIS POSTMENOPAUSAL
     Dosage: 60 MG/ML, UNK
     Route: 065
     Dates: start: 20131022

REACTIONS (4)
  - Secondary adrenocortical insufficiency [Unknown]
  - Hypothyroidism [Not Recovered/Not Resolved]
  - Hypopituitarism [Unknown]
  - Basedow^s disease [Unknown]

NARRATIVE: CASE EVENT DATE: 2013
